FAERS Safety Report 6185168-1 (Version None)
Quarter: 2009Q2

REPORT INFORMATION
  Report Type: 
  Country: None (occurrence: None)
  Receive Date: 20090511
  Receipt Date: 20090430
  Transmission Date: 20091009
  Serious: Yes (Other)
  Sender: FDA-Public Use
  Company Number: GB-PFIZER INC-2009205754

PATIENT

DRUGS (1)
  1. DEPO-PROVERA [Suspect]

REACTIONS (4)
  - BLOOD PRESSURE DECREASED [None]
  - HYPERSENSITIVITY [None]
  - OEDEMA PERIPHERAL [None]
  - URTICARIA [None]
